FAERS Safety Report 9161989 (Version 2)
Quarter: 2013Q2

REPORT INFORMATION
  Report Type: Spontaneous
  Country: US (occurrence: None)
  Receive Date: 20130225
  Receipt Date: 20130606
  Transmission Date: 20140414
  Serious: Yes (Other)
  Sender: FDA-Public Use
  Company Number: JPI-P-029821

PATIENT
  Age: 58 Year
  Sex: Female
  Weight: 108.41 kg

DRUGS (1)
  1. XYREM [Suspect]
     Indication: NARCOLEPSY
     Dosage: 7.5 GM (3.75 GM, 2 IN 1 D), ORAL
     Route: 048
     Dates: start: 20121202

REACTIONS (3)
  - Coma [None]
  - Hypoaesthesia [None]
  - Hypoaesthesia [None]
